FAERS Safety Report 17686186 (Version 3)
Quarter: 2020Q4

REPORT INFORMATION
  Report Type: Report from Study
  Country: AU (occurrence: AU)
  Receive Date: 20200420
  Receipt Date: 20201125
  Transmission Date: 20210113
  Serious: Yes (Hospitalization)
  Sender: FDA-Public Use
  Company Number: AU-INTERCEPT-CT2020000922

PATIENT
  Age: 44 Year
  Sex: Male
  Weight: 158 kg

DRUGS (14)
  1. ONDANSETRON [Concomitant]
     Active Substance: ONDANSETRON
     Indication: BILIARY COLIC
     Dosage: 4 MG, SINGLE
     Route: 042
     Dates: start: 20200330, end: 20200330
  2. CODEINE [Concomitant]
     Active Substance: CODEINE
     Dosage: 60 MG, SINGLE
     Route: 048
     Dates: start: 20200406, end: 20200406
  3. PARACETAMOL [Concomitant]
     Active Substance: ACETAMINOPHEN
     Indication: BILIARY COLIC
     Dosage: 1 G, SINGLE
     Route: 048
     Dates: start: 20200406, end: 20200406
  4. ONDANSETRON [Concomitant]
     Active Substance: ONDANSETRON
     Dosage: 4 MG, SINGLE
     Route: 060
     Dates: start: 20200403, end: 20200403
  5. BUSCOPAN [Concomitant]
     Active Substance: BUTYLSCOPOLAMINE BROMIDE
     Indication: BILIARY COLIC
     Dosage: 20 MG, SINGLE
     Route: 048
     Dates: start: 20200406, end: 20200406
  6. METOCLOPRAMIDE. [Concomitant]
     Active Substance: METOCLOPRAMIDE
     Indication: BILIARY COLIC
     Dosage: 10 MG, SINGLE
     Route: 048
     Dates: start: 20200406, end: 20200406
  7. OBETICHOLIC ACID [Suspect]
     Active Substance: OBETICHOLIC ACID
     Indication: NON-ALCOHOLIC STEATOHEPATITIS
     Dosage: 25 MG, QD
     Route: 048
     Dates: start: 20170216
  8. GASTROGEL [Concomitant]
     Active Substance: ALUMINUM HYDROXIDE\MAGNESIUM HYDROXIDE\MAGNESIUM TRISILICATE
     Indication: BILIARY COLIC
     Dosage: 10 ML, SINGLE
     Route: 048
     Dates: start: 20200330, end: 20200330
  9. OXYCODONE [Concomitant]
     Active Substance: OXYCODONE
     Indication: BILIARY COLIC
     Dosage: 5 MG, SINGLE
     Route: 048
     Dates: start: 20200406, end: 20200406
  10. FENTANYL. [Concomitant]
     Active Substance: FENTANYL
     Indication: BILIARY COLIC
     Dosage: 50 MCG, SINGLE
     Route: 042
     Dates: start: 20200403, end: 20200403
  11. SOMAC [Concomitant]
     Active Substance: PANTOPRAZOLE SODIUM
     Indication: GASTROOESOPHAGEAL REFLUX DISEASE
     Dosage: 40 MG, QD
     Route: 048
     Dates: start: 20110627
  12. MORPHINE [Concomitant]
     Active Substance: MORPHINE
     Indication: BILIARY COLIC
     Dosage: 2.5 MG, SINGLE
     Route: 042
     Dates: start: 20200330, end: 20200330
  13. XYLOCAINE VISCOUS [Concomitant]
     Active Substance: LIDOCAINE HYDROCHLORIDE
     Indication: BILIARY COLIC
     Dosage: 10 ML, SINGLE
     Route: 048
     Dates: start: 20200330, end: 20200330
  14. CODEINE [Concomitant]
     Active Substance: CODEINE
     Indication: BILIARY COLIC
     Dosage: 30 G, SINGLE
     Route: 048
     Dates: start: 20200403, end: 20200403

REACTIONS (1)
  - Cholecystitis acute [Recovered/Resolved]

NARRATIVE: CASE EVENT DATE: 20200409
